FAERS Safety Report 5935901-6 (Version None)
Quarter: 2008Q4

REPORT INFORMATION
  Report Type: 
  Country: None (occurrence: None)
  Receive Date: 20081030
  Receipt Date: 20080306
  Transmission Date: 20090506
  Serious: No
  Sender: FDA-Public Use
  Company Number: A0696327A

PATIENT
  Sex: Male

DRUGS (3)
  1. IMITREX [Suspect]
     Indication: MIGRAINE
     Dosage: 20MG AS REQUIRED
     Route: 045
  2. VERAPAMIL [Concomitant]
  3. DEPAKOTE [Concomitant]

REACTIONS (2)
  - NASAL DISCOMFORT [None]
  - PRODUCT QUALITY ISSUE [None]
